FAERS Safety Report 12573132 (Version 1)
Quarter: 2016Q3

REPORT INFORMATION
  Report Type: Spontaneous
  Country: US (occurrence: None)
  Receive Date: 20160719
  Receipt Date: 20160719
  Transmission Date: 20161109
  Serious: Yes (Hospitalization)
  Sender: FDA-Public Use
  Company Number: None

PATIENT
  Age: 48 Year
  Sex: Female
  Weight: 54.43 kg

DRUGS (1)
  1. GADOBUTROL [Suspect]
     Active Substance: GADOBUTROL
     Indication: NUCLEAR MAGNETIC RESONANCE IMAGING
     Dosage: FOR MRI INTO A VEIN
     Route: 042
     Dates: start: 20150526, end: 20150527

REACTIONS (24)
  - Feeling abnormal [None]
  - Weight increased [None]
  - Oedema [None]
  - Reaction to azo-dyes [None]
  - Injection site swelling [None]
  - Pain in extremity [None]
  - Paraplegia [None]
  - Food aversion [None]
  - Feeling cold [None]
  - Pruritus [None]
  - Asphyxia [None]
  - Decreased appetite [None]
  - Injection site pain [None]
  - Swelling face [None]
  - Burning sensation [None]
  - Discomfort [None]
  - Peripheral swelling [None]
  - Skin hypertrophy [None]
  - Muscle fatigue [None]
  - Contraindicated product administered [None]
  - Headache [None]
  - Skin discolouration [None]
  - Skin tightness [None]
  - Alopecia [None]

NARRATIVE: CASE EVENT DATE: 20160527
